FAERS Safety Report 6927065-7 (Version None)
Quarter: 2010Q3

REPORT INFORMATION
  Report Type: 
  Country: None (occurrence: None)
  Receive Date: 20100816
  Receipt Date: 20100726
  Transmission Date: 20110219
  Serious: No
  Sender: FDA-Public Use
  Company Number: US-ABBOTT-10P-163-0659995-00

PATIENT
  Sex: Female
  Weight: 83.536 kg

DRUGS (4)
  1. SIMCOR [Suspect]
     Indication: DYSLIPIDAEMIA
     Dosage: 100/20MG AT BEDTIME
     Route: 048
     Dates: start: 20100505, end: 20100526
  2. ASPIRIN [Concomitant]
     Indication: PRODUCT USED FOR UNKNOWN INDICATION
     Dosage: 1/2 HOUR BEFORE NIASPAN
     Route: 048
  3. VASERETIC [Concomitant]
     Indication: PRODUCT USED FOR UNKNOWN INDICATION
     Route: 048
  4. PERCOCET [Concomitant]
     Indication: BACK PAIN
     Route: 048

REACTIONS (1)
  - EPISTAXIS [None]
